FAERS Safety Report 26212636 (Version 1)
Quarter: 2025Q4

REPORT INFORMATION
  Report Type: Spontaneous
  Country: EU (occurrence: EU)
  Receive Date: 20251230
  Receipt Date: 20251230
  Transmission Date: 20260117
  Serious: Yes (Life-Threatening, Hospitalization, Other)
  Sender: AUROBINDO
  Company Number: EU-AEMPS-358398

PATIENT
  Age: 73 Year
  Sex: Male

DRUGS (2)
  1. PRAVASTATIN [Interacting]
     Active Substance: PRAVASTATIN
     Indication: Dyslipidaemia
     Dosage: 40 MG, QD
     Route: 061
     Dates: start: 20100310, end: 20171203
  2. WARFARIN SODIUM [Interacting]
     Active Substance: WARFARIN SODIUM
     Indication: Atrial fibrillation
     Dosage: 1 MILLIGRAM, ONCE A DAY
     Route: 061
     Dates: start: 200607, end: 20171203

REACTIONS (2)
  - Upper gastrointestinal haemorrhage [Recovered/Resolved]
  - Drug interaction [Unknown]

NARRATIVE: CASE EVENT DATE: 20171129
